FAERS Safety Report 17384117 (Version 1)
Quarter: 2020Q1

REPORT INFORMATION
  Report Type: Spontaneous
  Country: US (occurrence: US)
  Receive Date: 20200206
  Receipt Date: 20200206
  Transmission Date: 20200409
  Serious: No
  Sender: FDA-Public Use
  Company Number: US-ABBVIE-19K-163-2870647-00

PATIENT
  Age: 81 Year
  Sex: Male

DRUGS (1)
  1. HUMIRA [Suspect]
     Active Substance: ADALIMUMAB
     Indication: COLITIS ULCERATIVE
     Dosage: LOADING DOSE OF TWO 80 MILLIGRAM HUMIRA CITRATE FREE PEN
     Route: 058
     Dates: start: 201907, end: 201907

REACTIONS (1)
  - Rash [Unknown]

NARRATIVE: CASE EVENT DATE: 201907
